FAERS Safety Report 16909558 (Version 2)
Quarter: 2019Q4

REPORT INFORMATION
  Report Type: Report from Study
  Country: CA (occurrence: CA)
  Receive Date: 20191011
  Receipt Date: 20191206
  Transmission Date: 20200122
  Serious: Yes (Death)
  Sender: FDA-Public Use
  Company Number: CA-ASTRAZENECA-2019SF44788

PATIENT
  Sex: Male

DRUGS (1)
  1. IMFINZI [Suspect]
     Active Substance: DURVALUMAB
     Indication: NON-SMALL CELL LUNG CANCER
     Route: 042
     Dates: start: 20190313, end: 20190718

REACTIONS (5)
  - Acute kidney injury [Fatal]
  - Pneumonitis [Fatal]
  - Sepsis [Fatal]
  - Pneumonia [Fatal]
  - Haemorrhage [Fatal]
